FAERS Safety Report 9125622 (Version 3)
Quarter: 2013Q2

REPORT INFORMATION
  Report Type: Report from Study
  Country: US (occurrence: US)
  Receive Date: 20130228
  Receipt Date: 20130619
  Transmission Date: 20140414
  Serious: Yes (Other)
  Sender: FDA-Public Use
  Company Number: US-ABBOTT-13P-163-1053218-00

PATIENT
  Age: 28 Year
  Sex: Female

DRUGS (9)
  1. HUMIRA [Suspect]
     Indication: CROHN^S DISEASE
     Route: 058
     Dates: start: 20121119
  2. FLAGYL [Suspect]
     Indication: PRODUCT USED FOR UNKNOWN INDICATION
     Dates: end: 20130204
  3. PENTASA [Concomitant]
     Indication: CONDITION AGGRAVATED
     Dosage: UP TO 4000MGQD
  4. IMODIUM [Concomitant]
     Indication: HEADACHE
  5. IMODIUM [Concomitant]
     Indication: BLOOD IRON DECREASED
  6. IMODIUM [Concomitant]
     Indication: ANAL FISTULA
  7. IMODIUM [Concomitant]
     Indication: CROHN^S DISEASE
  8. MULTIVITAMIN [Concomitant]
     Indication: PRODUCT USED FOR UNKNOWN INDICATION
     Dosage: DAILY
  9. IRON [Concomitant]
     Indication: PRODUCT USED FOR UNKNOWN INDICATION
     Dosage: DAILY

REACTIONS (16)
  - Dizziness [Not Recovered/Not Resolved]
  - Headache [Unknown]
  - Anal fistula [Unknown]
  - Anal abscess [Unknown]
  - Adverse drug reaction [Unknown]
  - Peripheral coldness [Unknown]
  - Fall [Unknown]
  - Pyrexia [Unknown]
  - Pyrexia [Unknown]
  - Haematochezia [Unknown]
  - Pyrexia [Unknown]
  - Hypoaesthesia [Unknown]
  - Suicidal ideation [Recovered/Resolved]
  - Proctalgia [Recovering/Resolving]
  - Monoplegia [Unknown]
  - Haemoglobin abnormal [Not Recovered/Not Resolved]
